FAERS Safety Report 9391524 (Version 1)
Quarter: 2013Q3

REPORT INFORMATION
  Report Type: Spontaneous
  Country: FR (occurrence: FR)
  Receive Date: 20130709
  Receipt Date: 20130709
  Transmission Date: 20140515
  Serious: Yes (Other)
  Sender: FDA-Public Use
  Company Number: FR-CELGENEUS-056-21880-13064201

PATIENT
  Age: 73 Year
  Sex: Female
  Weight: 66 kg

DRUGS (11)
  1. REVLIMID [Suspect]
     Indication: PLASMA CELL MYELOMA
     Dosage: 25 MILLIGRAM
     Route: 048
     Dates: start: 20130218, end: 20130310
  2. REPAGLINIDE ARROW [Suspect]
     Indication: PRODUCT USED FOR UNKNOWN INDICATION
     Dosage: 1 MILLIGRAM
     Route: 048
     Dates: start: 20130306, end: 20130308
  3. ZOMETA [Suspect]
     Indication: PRODUCT USED FOR UNKNOWN INDICATION
     Dosage: 4 MILLIGRAM
     Route: 041
     Dates: start: 20120215, end: 20130215
  4. CORDARONE [Concomitant]
     Indication: ARRHYTHMIA
     Dosage: 600 MILLIGRAM
     Route: 065
     Dates: start: 20130205, end: 20130207
  5. CORDARONE [Concomitant]
     Dosage: 200 MILLIGRAM
     Route: 065
  6. LOVENOX [Concomitant]
     Indication: PROPHYLAXIS
     Dosage: .4 MILLILITER
     Route: 065
     Dates: start: 20130204, end: 20130205
  7. LOVENOX [Concomitant]
     Dosage: 1.4 MILLILITER
     Route: 065
     Dates: start: 20130205, end: 20130208
  8. DEXAMETHASONE [Concomitant]
     Indication: PRODUCT USED FOR UNKNOWN INDICATION
     Dosage: 20 MILLIGRAM
     Route: 065
     Dates: start: 20130218
  9. MOVICOL [Concomitant]
     Indication: PRODUCT USED FOR UNKNOWN INDICATION
     Dosage: 2 DOSAGE FORMS
     Route: 065
     Dates: start: 20130306, end: 20130311
  10. TAHOR [Concomitant]
     Indication: PRODUCT USED FOR UNKNOWN INDICATION
     Dosage: 10 MILLIGRAM
     Route: 065
  11. LEVOTHYROX [Concomitant]
     Indication: PRODUCT USED FOR UNKNOWN INDICATION
     Dosage: 100 MICROGRAM
     Route: 065

REACTIONS (1)
  - Vascular purpura [Recovered/Resolved]
